FAERS Safety Report 4750696-X (Version None)
Quarter: 2005Q3

REPORT INFORMATION
  Report Type: 
  Country: None (occurrence: None)
  Receive Date: 20050823
  Receipt Date: 20050722
  Transmission Date: 20060218
  Serious: Yes (Other)
  Sender: FDA-Public Use
  Company Number: 200515970US

PATIENT
  Sex: Female
  Weight: 109.1 kg

DRUGS (9)
  1. LANTUS [Suspect]
     Indication: DIABETES MELLITUS NON-INSULIN-DEPENDENT
     Dosage: DOSE: DOSES UP TO 35; DOSE UNIT: UNITS
     Route: 051
     Dates: start: 20050420, end: 20050723
  2. ANTIDEPRESSANTS [Concomitant]
     Indication: NEUROPATHY
     Dates: start: 20050101
  3. CELEBREX [Concomitant]
     Indication: ARTHRITIS
     Dates: start: 20010601
  4. DYAZIDE [Concomitant]
     Indication: HYPERTENSION
     Dosage: DOSE: UNKNOWN
     Dates: start: 20010601
  5. CLONIDINE [Concomitant]
     Indication: HYPERTENSION
     Dates: start: 20010601
  6. GLUCOTROL [Concomitant]
     Indication: DIABETES MELLITUS
     Dates: start: 20010601
  7. GARLIC [Concomitant]
     Dosage: DOSE: UNKNOWN
  8. PARSLEY [Concomitant]
     Dosage: DOSE: UNKNOWN
  9. ASPIRIN [Concomitant]
     Dosage: DOSE: UNKNOWN

REACTIONS (12)
  - BLOOD GLUCOSE INCREASED [None]
  - BURNING SENSATION [None]
  - BUTTOCK PAIN [None]
  - DIFFICULTY IN WALKING [None]
  - DYSPNOEA [None]
  - HYPOAESTHESIA [None]
  - MUSCLE SPASMS [None]
  - MYALGIA [None]
  - NEUROPATHY PERIPHERAL [None]
  - PAIN IN EXTREMITY [None]
  - PRURITUS [None]
  - WHEEZING [None]
